FAERS Safety Report 26195952 (Version 1)
Quarter: 2025Q4

REPORT INFORMATION
  Report Type: Spontaneous
  Country: US (occurrence: US)
  Receive Date: 20251224
  Receipt Date: 20251224
  Transmission Date: 20260117
  Serious: Yes (Other)
  Sender: BRISTOL-MYERS SQUIBB COMPANY
  Company Number: US-BRISTOL-MYERS SQUIBB COMPANY-2025-171966

PATIENT
  Age: 73 Year
  Sex: Male
  Weight: 125 kg

DRUGS (7)
  1. ELIQUIS [Suspect]
     Active Substance: APIXABAN
     Indication: Coronary artery disease
  2. VYNDAMAX [Suspect]
     Active Substance: TAFAMIDIS
     Indication: Product used for unknown indication
     Dosage: QUANTITY #30 CAPSULES (30 DAYS)?REFILLS: 11
     Route: 048
     Dates: end: 20251204
  3. ALDACTONE [Concomitant]
     Active Substance: SPIRONOLACTONE
     Indication: Product used for unknown indication
     Dosage: TAKE 0.5 TABLETS (12.5 MG TOTAL) BY MOUTH DAILY?DISPENSE: 15 TABLET, REFILL: 11
     Route: 048
     Dates: start: 20250430
  4. CARVEDILOL [Concomitant]
     Active Substance: CARVEDILOL
     Indication: Coronary artery disease
  5. PLAVIX [Concomitant]
     Active Substance: CLOPIDOGREL BISULFATE
     Indication: Coronary artery disease
  6. CRESTOR [Concomitant]
     Active Substance: ROSUVASTATIN CALCIUM
     Indication: Coronary artery disease
     Dosage: TAKE 1 TABLET (20 MG TOTAL) BY MOUTH EVERY EVENING. ?DISPENSE: 90 TABLET, REFILL: 3
     Route: 048
     Dates: start: 20250709
  7. CRESTOR [Concomitant]
     Active Substance: ROSUVASTATIN CALCIUM
     Indication: Hyperlipidaemia

REACTIONS (2)
  - Chronic left ventricular failure [Unknown]
  - Off label use [Unknown]
